FAERS Safety Report 4353980-7 (Version None)
Quarter: 2004Q2

REPORT INFORMATION
  Report Type: 
  Country: None (occurrence: None)
  Receive Date: 20040506
  Receipt Date: 20040305
  Transmission Date: 20050107
  Serious: No
  Sender: FDA-Public Use
  Company Number: US-GLAXOSMITHKLINE-A0501446A

PATIENT
  Age: 67 Year
  Sex: Female

DRUGS (6)
  1. AVANDAMET [Suspect]
     Route: 048
     Dates: start: 20040305
  2. AMARYL [Concomitant]
     Dates: start: 20040305
  3. FOSAMAX [Concomitant]
  4. FLONASE [Concomitant]
  5. ZOCOR [Concomitant]
  6. PREMARIN [Concomitant]

REACTIONS (1)
  - HYPERGLYCAEMIA [None]
